FAERS Safety Report 21212670 (Version 1)
Quarter: 2022Q3

REPORT INFORMATION
  Report Type: Spontaneous
  Country: US (occurrence: None)
  Receive Date: 20220814
  Receipt Date: 20220814
  Transmission Date: 20221027
  Serious: Yes (Hospitalization, Other)
  Sender: FDA-Public Use
  Company Number: None

PATIENT
  Age: 4 Year
  Sex: Male
  Weight: 16.2 kg

DRUGS (1)
  1. CYCLOPENTOLATE [Suspect]
     Active Substance: CYCLOPENTOLATE
     Indication: Pupil dilation procedure
     Dates: start: 20220812, end: 20220812

REACTIONS (6)
  - Blindness [None]
  - Balance disorder [None]
  - Hallucination [None]
  - Ataxia [None]
  - Disorganised speech [None]
  - Behaviour disorder [None]

NARRATIVE: CASE EVENT DATE: 20220812
